FAERS Safety Report 22692818 (Version 11)
Quarter: 2023Q4

REPORT INFORMATION
  Report Type: Spontaneous
  Country: US (occurrence: US)
  Receive Date: 20230711
  Receipt Date: 20231030
  Transmission Date: 20240109
  Serious: No
  Sender: FDA-Public Use
  Company Number: US-PFIZER INC-PV202300117374

PATIENT
  Age: 5 Year
  Sex: Female
  Weight: 13.605 kg

DRUGS (2)
  1. GENOTROPIN [Suspect]
     Active Substance: SOMATROPIN
     Indication: Short stature
     Dosage: 0.6 MG, DAILY
  2. GENOTROPIN [Suspect]
     Active Substance: SOMATROPIN
     Indication: Growth disorder
     Dosage: 0.5 MG

REACTIONS (4)
  - Device breakage [Unknown]
  - Device mechanical issue [Unknown]
  - Device physical property issue [Unknown]
  - Device delivery system issue [Unknown]
